FAERS Safety Report 4978187-1 (Version None)
Quarter: 2006Q2

REPORT INFORMATION
  Report Type: 
  Country: None (occurrence: None)
  Receive Date: 20060420
  Receipt Date: 20060222
  Transmission Date: 20061013
  Serious: Yes (Hospitalization)
  Sender: FDA-Public Use
  Company Number: JP-ROCHE-438230

PATIENT
  Age: 8 Year
  Sex: Male
  Weight: 29 kg

DRUGS (2)
  1. TAMIFLU [Suspect]
     Dosage: FORM: DRY SYRUP. WAS ADMINISTERED AT 11AM AND 9PM.
     Route: 048
     Dates: start: 20060201, end: 20060201
  2. UNSPECIFIED DRUG [Concomitant]
     Dosage: REPORTED AS UNKNOWN DRUG AND ANTIFEBRILE.
     Route: 048
     Dates: start: 20060201, end: 20060201

REACTIONS (1)
  - ABNORMAL BEHAVIOUR [None]
